FAERS Safety Report 25411257 (Version 2)
Quarter: 2025Q3

REPORT INFORMATION
  Report Type: Spontaneous
  Country: EU (occurrence: EU)
  Receive Date: 20250609
  Receipt Date: 20250711
  Transmission Date: 20251020
  Serious: Yes (Other)
  Sender: ROCHE
  Company Number: None

PATIENT
  Age: 58 Year

DRUGS (5)
  1. BEVACIZUMAB [Suspect]
     Active Substance: BEVACIZUMAB
     Indication: Product used for unknown indication
     Route: 065
  2. OZURDEX [Suspect]
     Active Substance: DEXAMETHASONE
     Indication: Product used for unknown indication
     Route: 047
  3. OZURDEX [Suspect]
     Active Substance: DEXAMETHASONE
     Route: 047
  4. VABYSMO [Concomitant]
     Active Substance: FARICIMAB-SVOA
     Indication: Product used for unknown indication
     Route: 065
     Dates: end: 202409
  5. RANIBIZUMAB [Concomitant]
     Active Substance: RANIBIZUMAB
     Indication: Product used for unknown indication

REACTIONS (9)
  - Posterior capsule opacification [Unknown]
  - Visual acuity reduced [Unknown]
  - Retinal degeneration [Unknown]
  - Drug ineffective [Unknown]
  - Myopia [Unknown]
  - Retinal disorder [Unknown]
  - Eye disorder [Unknown]
  - Retinal oedema [Unknown]
  - Dry eye [Unknown]
